FAERS Safety Report 4962595-9 (Version None)
Quarter: 2006Q1

REPORT INFORMATION
  Report Type: 
  Country: None (occurrence: None)
  Receive Date: 20060201
  Receipt Date: 20051102
  Transmission Date: 20060701
  Serious: No
  Sender: FDA-Public Use
  Company Number: 2005PV004125

PATIENT
  Age: 56 Year
  Sex: Female
  Weight: 80.7403 kg

DRUGS (7)
  1. BYETTA [Suspect]
     Indication: DIABETES MELLITUS NON-INSULIN-DEPENDENT
     Dosage: 5 MCG;BID;SC
     Route: 058
     Dates: start: 20051019
  2. GLIMEPIRIDE [Concomitant]
  3. WELLBUTRIN [Concomitant]
  4. ALDACTONE [Concomitant]
  5. PLAVIX [Concomitant]
  6. BENICAR HCT [Concomitant]
  7. ASPIRIN [Concomitant]

REACTIONS (2)
  - DIARRHOEA [None]
  - FAECES DISCOLOURED [None]
